FAERS Safety Report 23642075 (Version 2)
Quarter: 2024Q1

REPORT INFORMATION
  Report Type: Report from Study
  Country: CA (occurrence: CA)
  Receive Date: 20240318
  Receipt Date: 20240322
  Transmission Date: 20240410
  Serious: Yes (Other)
  Sender: FDA-Public Use
  Company Number: CA-GILEAD-2024-0665819

PATIENT
  Sex: Female

DRUGS (1)
  1. AZTREONAM LYSINE [Suspect]
     Active Substance: AZTREONAM LYSINE
     Indication: Cystic fibrosis
     Dosage: 75 MG, TID,75MG 3X/DAY FOR 28 DAYS, OFF FOR 28 DAYS THEN REPEAT CYCLE
     Route: 065

REACTIONS (1)
  - Skin cancer [Unknown]
